FAERS Safety Report 9652829 (Version 2)
Quarter: 2013Q4

REPORT INFORMATION
  Report Type: Spontaneous
  Country: US (occurrence: US)
  Receive Date: 20131029
  Receipt Date: 20131126
  Transmission Date: 20140711
  Serious: Yes (Other)
  Sender: FDA-Public Use
  Company Number: US-ROXANE LABORATORIES, INC.-2013-RO-01747RO

PATIENT
  Sex: 0

DRUGS (1)
  1. CODEINE SULFATE [Suspect]

REACTIONS (4)
  - Product tampering [Unknown]
  - Drug ineffective [Unknown]
  - Adverse drug reaction [Unknown]
  - Product quality issue [Unknown]
